FAERS Safety Report 5601438-7 (Version None)
Quarter: 2008Q1

REPORT INFORMATION
  Report Type: 
  Country: None (occurrence: None)
  Receive Date: 20080124
  Receipt Date: 20080118
  Transmission Date: 20080703
  Serious: Yes (Death, Life-Threatening, Hospitalization, Other)
  Sender: FDA-Public Use
  Company Number: PHBS2007JP18314

PATIENT
  Age: 68 Year
  Sex: Male
  Weight: 49 kg

DRUGS (9)
  1. DIOVAN [Suspect]
     Indication: HYPERTENSION
     Dosage: 80 MG/DAY
     Route: 048
     Dates: start: 20070217, end: 20071014
  2. NORVASC [Concomitant]
     Dosage: 5 MG/DAY
     Route: 048
     Dates: start: 20071002, end: 20071014
  3. MINIPRESS [Concomitant]
     Dosage: 6 MG/DAY
     Route: 048
     Dates: start: 20071002, end: 20071014
  4. TAKEPRON [Concomitant]
     Dosage: 15 MG/DAY
     Route: 048
     Dates: start: 20071002, end: 20071014
  5. ASPIRIN [Concomitant]
     Dosage: 100 MG/DAY
     Route: 048
     Dates: start: 20070217, end: 20071014
  6. ALFAROL [Concomitant]
     Dosage: 0.25 DF/DAY
     Route: 048
     Dates: start: 20070217, end: 20071014
  7. SELBEX [Concomitant]
     Dosage: 150 MG/DAY
     Route: 048
     Dates: start: 20070922, end: 20071014
  8. CYANOCOBALAMIN [Concomitant]
     Dosage: 1500 UG/DAY
     Route: 048
     Dates: start: 20070217, end: 20071014
  9. CALCIUM CARBONATE [Concomitant]
     Dosage: 6 G/DAY
     Route: 048
     Dates: start: 20070922, end: 20071014

REACTIONS (28)
  - ALANINE AMINOTRANSFERASE INCREASED [None]
  - ASPARTATE AMINOTRANSFERASE INCREASED [None]
  - BLOOD ALKALINE PHOSPHATASE INCREASED [None]
  - BLOOD AMYLASE INCREASED [None]
  - BLOOD CREATININE INCREASED [None]
  - BLOOD GLUCOSE DECREASED [None]
  - BLOOD INSULIN INCREASED [None]
  - BLOOD LACTATE DEHYDROGENASE INCREASED [None]
  - BLOOD PARATHYROID HORMONE INCREASED [None]
  - BLOOD POTASSIUM DECREASED [None]
  - BLOOD SODIUM DECREASED [None]
  - BLOOD UREA INCREASED [None]
  - C-REACTIVE PROTEIN INCREASED [None]
  - CEREBRAL INFARCTION [None]
  - COLD SWEAT [None]
  - DIZZINESS [None]
  - FALL [None]
  - HAEMATOCRIT DECREASED [None]
  - HAEMOGLOBIN DECREASED [None]
  - HYPOGLYCAEMIA [None]
  - PANCREATIC DISORDER [None]
  - PANCREATITIS [None]
  - PLATELET COUNT DECREASED [None]
  - PNEUMONIA [None]
  - RED BLOOD CELL COUNT DECREASED [None]
  - SOMNOLENCE [None]
  - TREMOR [None]
  - WHITE BLOOD CELL COUNT INCREASED [None]
